FAERS Safety Report 8601211-1 (Version None)
Quarter: 2012Q3

REPORT INFORMATION
  Report Type: 
  Country: None (occurrence: None)
  Receive Date: 20120817
  Receipt Date: 20120810
  Transmission Date: 20120928
  Serious: Yes (Hospitalization, Other)
  Sender: FDA-Public Use
  Company Number: PHHY2012CA051860

PATIENT
  Sex: Female

DRUGS (1)
  1. CLOZARIL [Suspect]
     Indication: DEMENTIA WITH LEWY BODIES
     Dates: start: 20120521, end: 20120605

REACTIONS (3)
  - THERAPEUTIC RESPONSE DECREASED [None]
  - DELIRIUM [None]
  - INFECTION [None]
